FAERS Safety Report 23347797 (Version 1)
Quarter: 2023Q4

REPORT INFORMATION
  Report Type: Report from Study
  Country: CA (occurrence: CA)
  Receive Date: 20231228
  Receipt Date: 20231228
  Transmission Date: 20240110
  Serious: Yes (Hospitalization)
  Sender: FDA-Public Use
  Company Number: CA-JNJFOC-20230361324

PATIENT
  Age: 5 Decade
  Sex: Female

DRUGS (14)
  1. MACITENTAN [Suspect]
     Active Substance: MACITENTAN
     Indication: Pulmonary arterial hypertension
     Route: 048
     Dates: start: 20200919
  2. MACITENTAN [Suspect]
     Active Substance: MACITENTAN
     Route: 048
     Dates: start: 20201009
  3. SELEXIPAG [Suspect]
     Active Substance: SELEXIPAG
     Indication: Pulmonary arterial hypertension
     Route: 048
     Dates: start: 20231207
  4. ADEMPAS [Concomitant]
     Active Substance: RIOCIGUAT
  5. HYDROXYUREA [Concomitant]
     Active Substance: HYDROXYUREA
  6. NABILONE [Concomitant]
     Active Substance: NABILONE
  7. PANTOPRAZOLE [Concomitant]
     Active Substance: PANTOPRAZOLE
  8. DEFERASIROX [Concomitant]
     Active Substance: DEFERASIROX
  9. LEVOTHYROXINE [Concomitant]
     Active Substance: LEVOTHYROXINE
  10. SENOKOT [Concomitant]
     Active Substance: SENNOSIDES
  11. MELATONIN [Concomitant]
     Active Substance: MELATONIN
  12. GRAVOL [Concomitant]
     Active Substance: DIMENHYDRINATE
  13. SALMETEROL [Concomitant]
     Active Substance: SALMETEROL
  14. FRAGMIN [Concomitant]
     Active Substance: DALTEPARIN SODIUM

REACTIONS (5)
  - Headache [Unknown]
  - Right ventricular failure [Not Recovered/Not Resolved]
  - Pain [Unknown]
  - Pulmonary arterial hypertension [Not Recovered/Not Resolved]
  - Off label use [Unknown]
